FAERS Safety Report 13202350 (Version 1)
Quarter: 2017Q1

REPORT INFORMATION
  Report Type: Spontaneous
  Country: US (occurrence: US)
  Receive Date: 20170209
  Receipt Date: 20170209
  Transmission Date: 20170428
  Serious: No
  Sender: FDA-Public Use
  Company Number: US-PFIZER INC-2017053247

PATIENT
  Age: 66 Year
  Sex: Male
  Weight: 113 kg

DRUGS (1)
  1. CELECOXIB. [Suspect]
     Active Substance: CELECOXIB
     Indication: ARTHRITIS
     Dosage: 200 MG, 1X/DAY

REACTIONS (3)
  - Musculoskeletal stiffness [Unknown]
  - Drug ineffective [Unknown]
  - Gait disturbance [Unknown]
